FAERS Safety Report 8470381-0 (Version None)
Quarter: 2012Q2

REPORT INFORMATION
  Report Type: 
  Country: None (occurrence: None)
  Receive Date: 20120620
  Receipt Date: 20120613
  Transmission Date: 20120825
  Serious: Yes (Life-Threatening, Hospitalization, Other)
  Sender: FDA-Public Use
  Company Number: DAV-AE-CLO-12-05

PATIENT
  Age: 62 Year
  Sex: Female

DRUGS (4)
  1. CLONIDINE [Suspect]
     Indication: HOT FLUSH
     Dosage: 10.2 MG 1.12 TABS),
  2. TAMOWIFEN 10 MG [Concomitant]
  3. FUROSEMIDE [Suspect]
     Indication: PRODUCT USED FOR UNKNOWN INDICATION
     Dosage: 40 MG (50 TABS),
  4. ACETAMINOPHEN [Concomitant]

REACTIONS (4)
  - LOSS OF CONSCIOUSNESS [None]
  - SUICIDE ATTEMPT [None]
  - HYPOTHERMIA [None]
  - INTENTIONAL OVERDOSE [None]
